FAERS Safety Report 4293780-X (Version None)
Quarter: 2004Q1

REPORT INFORMATION
  Report Type: 
  Country: None (occurrence: None)
  Receive Date: 20040210
  Receipt Date: 20040127
  Transmission Date: 20041129
  Serious: Yes (Death)
  Sender: FDA-Public Use
  Company Number: 02100-USA-04-0057

PATIENT
  Age: 78 Year
  Sex: Male

DRUGS (1)
  1. PLETAL [Suspect]
     Indication: CARDIAC DISORDER
     Dosage: DF ORAL
     Route: 048
     Dates: end: 20040124

REACTIONS (1)
  - CARDIAC DISORDER [None]
